FAERS Safety Report 5563391-4 (Version None)
Quarter: 2007Q4

REPORT INFORMATION
  Report Type: 
  Country: None (occurrence: None)
  Receive Date: 20071217
  Receipt Date: 20070405
  Transmission Date: 20080405
  Serious: No
  Sender: FDA-Public Use
  Company Number: US-ASTRAZENECA-2007UW06752

PATIENT
  Age: 64 Year
  Sex: Female
  Weight: 55.8 kg

DRUGS (4)
  1. CRESTOR [Suspect]
     Indication: BLOOD CHOLESTEROL INCREASED
     Route: 048
  2. THYROID TAB [Concomitant]
  3. ESTROGEN SUPPLEMENT [Concomitant]
  4. PROZAC [Concomitant]

REACTIONS (1)
  - NIGHTMARE [None]
